FAERS Safety Report 7214420-3 (Version None)
Quarter: 2011Q1

REPORT INFORMATION
  Report Type: 
  Country: None (occurrence: None)
  Receive Date: 20110107
  Receipt Date: 20101229
  Transmission Date: 20110831
  Serious: Yes (Hospitalization, Other)
  Sender: FDA-Public Use
  Company Number: PHHO2010JP11409

PATIENT
  Sex: Male
  Weight: 49 kg

DRUGS (14)
  1. COMPARATOR ENALAPRIL [Suspect]
     Indication: CARDIAC FAILURE
     Dosage: 10MG DAILY
     Route: 048
     Dates: start: 20091223
  2. BLINDED NO TREATMENT RECEIVED [Suspect]
     Indication: CARDIAC FAILURE
     Dosage: CODE NOT BROKEN
     Route: 048
     Dates: start: 20100309, end: 20101229
  3. WARFARIN POTASSIUM [Concomitant]
     Dosage: UNK
     Dates: start: 19991117
  4. COMPARATOR ENALAPRIL [Suspect]
     Dosage: 20MG DAILY
     Route: 048
     Dates: start: 20100119
  5. ACYCLOVIR [Concomitant]
  6. BLINDED ALISKIREN [Suspect]
     Indication: CARDIAC FAILURE
     Dosage: CODE NOT BROKEN
     Route: 048
     Dates: start: 20100309, end: 20101229
  7. SENNOSIDE [Concomitant]
  8. CARVEDILOL [Concomitant]
     Dosage: UNK
     Dates: start: 20090323
  9. BLINDED ENALAPRIL [Suspect]
     Indication: CARDIAC FAILURE
     Dosage: CODE NOT BROKEN
     Route: 048
     Dates: start: 20100309, end: 20101229
  10. ALISKIREN [Suspect]
     Indication: CARDIAC FAILURE
     Dosage: 150 MG DAILY
     Route: 048
     Dates: start: 20100216
  11. ARASENA A [Concomitant]
     Dosage: UNK
  12. NICORANDIL [Concomitant]
     Dosage: UNK
     Dates: start: 20060420
  13. SPIRONOLACTONE [Concomitant]
     Dosage: UNK
     Dates: start: 20091106
  14. FUROSEMIDE [Concomitant]
     Dosage: UNK
     Dates: start: 20090709

REACTIONS (17)
  - DEHYDRATION [None]
  - RENAL IMPAIRMENT [None]
  - DECREASED APPETITE [None]
  - ANKLE FRACTURE [None]
  - PANCYTOPENIA [None]
  - FALL [None]
  - PALLOR [None]
  - HYPOPHAGIA [None]
  - ROTATOR CUFF SYNDROME [None]
  - HYPOTENSION [None]
  - ANAEMIA [None]
  - MALAISE [None]
  - SWELLING [None]
  - ABDOMINAL DISCOMFORT [None]
  - BONE ATROPHY [None]
  - OCULAR ICTERUS [None]
  - JOINT SWELLING [None]
